FAERS Safety Report 18991961 (Version 1)
Quarter: 2021Q1

REPORT INFORMATION
  Report Type: Report from Study
  Country: GB (occurrence: GB)
  Receive Date: 20210310
  Receipt Date: 20210310
  Transmission Date: 20210420
  Serious: Yes (Other)
  Sender: FDA-Public Use
  Company Number: NVSC2021GB052910

PATIENT
  Sex: Female

DRUGS (1)
  1. HYRIMOZ [Suspect]
     Active Substance: ADALIMUMAB-ADAZ
     Indication: CROHN^S DISEASE
     Dosage: 40MG/0.8ML, QW
     Route: 058
     Dates: start: 20201204

REACTIONS (2)
  - Fistula discharge [Not Recovered/Not Resolved]
  - Perineal abscess [Not Recovered/Not Resolved]
